FAERS Safety Report 6651335-3 (Version None)
Quarter: 2010Q1

REPORT INFORMATION
  Report Type: 
  Country: None (occurrence: None)
  Receive Date: 20100325
  Receipt Date: 20100316
  Transmission Date: 20100710
  Serious: Yes (Hospitalization, Other)
  Sender: FDA-Public Use
  Company Number: PE-BRISTOL-MYERS SQUIBB COMPANY-15016835

PATIENT
  Age: 57 Year
  Sex: Female

DRUGS (10)
  1. BLINDED: ABATACEPT [Suspect]
     Indication: RHEUMATOID ARTHRITIS
     Dosage: INTERTD ON 23JUL09 750MG/W(C:24)RESTARTED 24JUL09 125MG/W TILL 10MAR2010;(C:34)
     Route: 058
     Dates: start: 20090203
  2. METHOTREXATE [Suspect]
     Indication: RHEUMATOID ARTHRITIS
     Dates: start: 20080218, end: 20100310
  3. BLINDED: PLACEBO [Suspect]
     Indication: RHEUMATOID ARTHRITIS
     Dosage: INTERRUPTED ON 23JUL09(COURSE:24) AND RESTARTED ON 24JUL09 AND TAKEN TILL 10MAR2010;COURSE:34
     Route: 058
     Dates: start: 20090203
  4. PREDNISONE [Concomitant]
     Dates: start: 20080218, end: 20100310
  5. RANITIDINE [Concomitant]
     Dates: start: 20080218, end: 20100310
  6. NAPROXEN [Concomitant]
     Dates: start: 20080218, end: 20100310
  7. FOLIC ACID [Concomitant]
     Dates: start: 20080218, end: 20100310
  8. CALCIUM CARBONATE [Concomitant]
     Dates: start: 20080218, end: 20100310
  9. ERGOCALCIFEROL [Concomitant]
     Dates: start: 20080218, end: 20100310
  10. ALENDRONATE SODIUM [Concomitant]
     Dates: start: 20080218, end: 20100310

REACTIONS (2)
  - LARGE INTESTINE PERFORATION [None]
  - PERITONITIS [None]
